FAERS Safety Report 18217125 (Version 1)
Quarter: 2020Q3

REPORT INFORMATION
  Report Type: Other
  Country: CA (occurrence: CA)
  Receive Date: 20200901
  Receipt Date: 20200901
  Transmission Date: 20201103
  Serious: Yes (Other)
  Sender: FDA-Public Use
  Company Number: CA-COVIS PHARMA B.V.-2020COV00415

PATIENT
  Age: 43 Year
  Sex: Female

DRUGS (25)
  1. MEPOLIZUMAB [Suspect]
     Active Substance: MEPOLIZUMAB
     Indication: ASTHMA
     Dosage: 100 MG
     Route: 042
  2. ZENHALE [Suspect]
     Active Substance: FORMOTEROL FUMARATE\MOMETASONE FUROATE
  3. ADVAIR HFA [Suspect]
     Active Substance: FLUTICASONE PROPIONATE\SALMETEROL XINAFOATE
  4. BREO ELLIPTA [Suspect]
     Active Substance: FLUTICASONE FUROATE\VILANTEROL TRIFENATATE
  5. NASONEX [Suspect]
     Active Substance: MOMETASONE FUROATE
  6. SEEBRI [Suspect]
     Active Substance: GLYCOPYRROLATE
  7. OMNARIS [Suspect]
     Active Substance: CICLESONIDE
  8. PREDNISONE. [Suspect]
     Active Substance: PREDNISONE
  9. TUDORZA GENUAIR [Suspect]
     Active Substance: ACLIDINIUM BROMIDE
  10. ATROVENT [Suspect]
     Active Substance: IPRATROPIUM BROMIDE
  11. PMS AZITHROMYCIN [Suspect]
     Active Substance: AZITHROMYCIN ANHYDROUS
  12. UMECLIDINIUM BROMIDE [Suspect]
     Active Substance: UMECLIDINIUM BROMIDE
  13. XOLAIR [Suspect]
     Active Substance: OMALIZUMAB
  14. COMBIVENT [Suspect]
     Active Substance: ALBUTEROL SULFATE\IPRATROPIUM BROMIDE
  15. SPIRIVA RESPIMAT [Suspect]
     Active Substance: TIOTROPIUM BROMIDE
     Dosage: 18 ?G
  16. AVAMYS [Suspect]
     Active Substance: FLUTICASONE FUROATE
  17. DUAKLIR GENUAIR [Suspect]
     Active Substance: ACLIDINIUM BROMIDE\FORMOTEROL FUMARATE
  18. MOXIFLOXACIN HYDROCHLORIDE. [Suspect]
     Active Substance: MOXIFLOXACIN HYDROCHLORIDE
  19. VENTOLIN [Suspect]
     Active Substance: ALBUTEROL SULFATE
     Dosage: 400 ?G
  20. SINGULAIR [Suspect]
     Active Substance: MONTELUKAST SODIUM
  21. ULTIBRO BREEZHALER [Suspect]
     Active Substance: GLYCOPYRRONIUM\INDACATEROL
  22. UMECLIDINIUM BROMIDE; VILANTEROL TRIFENATATE [Suspect]
     Active Substance: UMECLIDINIUM BROMIDE\VILANTEROL TRIFENATATE
  23. INSPIOLTO RESPIMAT [Suspect]
     Active Substance: OLODATEROL HYDROCHLORIDE\TIOTROPIUM BROMIDE MONOHYDRATE
  24. SYMBICORT [Suspect]
     Active Substance: BUDESONIDE\FORMOTEROL FUMARATE DIHYDRATE
  25. CIPROFLOXACIN HYDROCHLORIDE. [Suspect]
     Active Substance: CIPROFLOXACIN HYDROCHLORIDE

REACTIONS (12)
  - Oedema peripheral [Unknown]
  - Total lung capacity increased [Unknown]
  - Cardiac murmur [Unknown]
  - Wheezing [Unknown]
  - Chronic obstructive pulmonary disease [Unknown]
  - Gastrooesophageal reflux disease [Unknown]
  - Rhinitis allergic [Unknown]
  - Asthma-chronic obstructive pulmonary disease overlap syndrome [Unknown]
  - Lung neoplasm malignant [Unknown]
  - Sarcoidosis [Unknown]
  - Bronchiectasis [Unknown]
  - Nasal polyps [Unknown]
